FAERS Safety Report 5384361-5 (Version None)
Quarter: 2007Q3

REPORT INFORMATION
  Report Type: 
  Country: None (occurrence: None)
  Receive Date: 20070711
  Receipt Date: 20070629
  Transmission Date: 20080115
  Serious: Yes (Other)
  Sender: FDA-Public Use
  Company Number: JP-ASTRAZENECA-2007AP03255

PATIENT
  Age: 11 Year
  Sex: Male
  Weight: 46 kg

DRUGS (9)
  1. MEROPENEM [Suspect]
     Indication: PNEUMONIA
     Route: 041
     Dates: start: 20070209, end: 20070221
  2. LASIX [Concomitant]
     Indication: CARDIAC OPERATION
     Route: 048
     Dates: start: 19960215
  3. ALDACTONE [Concomitant]
     Indication: CARDIAC OPERATION
     Route: 048
     Dates: start: 19960215, end: 20070330
  4. WARFARIN SODIUM [Concomitant]
     Indication: CARDIAC OPERATION
     Route: 048
     Dates: start: 19970411
  5. NEUROTAN [Concomitant]
     Indication: CARDIAC OPERATION
     Route: 048
     Dates: start: 20050315, end: 20070329
  6. TRACLEER [Concomitant]
     Indication: CARDIAC OPERATION
     Route: 048
     Dates: start: 20070214
  7. DICHLOTRIDE [Concomitant]
     Indication: HYDROTHORAX
     Route: 048
     Dates: start: 20070216, end: 20070222
  8. DASEN [Concomitant]
     Indication: PNEUMONIA
     Route: 048
     Dates: start: 20070217
  9. MUCODYNE [Concomitant]
     Indication: PNEUMONIA
     Route: 048
     Dates: start: 20070217

REACTIONS (4)
  - ASCITES [None]
  - RENAL FAILURE ACUTE [None]
  - TUBULOINTERSTITIAL NEPHRITIS [None]
  - VOMITING [None]
